FAERS Safety Report 6544662-1 (Version None)
Quarter: 2010Q1

REPORT INFORMATION
  Report Type: 
  Country: None (occurrence: None)
  Receive Date: 20100115
  Receipt Date: 20100113
  Transmission Date: 20100710
  Serious: Yes (Other)
  Sender: FDA-Public Use
  Company Number: 1000011251

PATIENT
  Age: 82 Year
  Sex: Female

DRUGS (1)
  1. THYROID TAB [Suspect]
     Indication: HYPOTHYROIDISM
     Dosage: 60 MG (60 MG,1 IN 1 D),ORAL
     Route: 048
     Dates: start: 19950101

REACTIONS (4)
  - ATRIAL FIBRILLATION [None]
  - HEART RATE DECREASED [None]
  - HEART RATE INCREASED [None]
  - TREMOR [None]
